FAERS Safety Report 5950628-2 (Version None)
Quarter: 2008Q4

REPORT INFORMATION
  Report Type: 
  Country: None (occurrence: None)
  Receive Date: 20081112
  Receipt Date: 20081031
  Transmission Date: 20090506
  Serious: Yes (Death, Other)
  Sender: FDA-Public Use
  Company Number: US-BRISTOL-MYERS SQUIBB COMPANY-13786165

PATIENT
  Age: 81 Year
  Sex: Male
  Weight: 92 kg

DRUGS (4)
  1. CETUXIMAB [Suspect]
     Indication: COLON CANCER
     Dates: start: 20070418, end: 20070418
  2. LEUCOVORIN CALCIUM [Suspect]
     Indication: COLON CANCER
     Dates: start: 20070328, end: 20070328
  3. FLUOROURACIL [Suspect]
     Indication: COLON CANCER
     Route: 040
     Dates: start: 20070418, end: 20070418
  4. OXALIPLATIN [Suspect]
     Indication: COLON CANCER
     Dates: start: 20070411, end: 20070411

REACTIONS (2)
  - HYPOMAGNESAEMIA [None]
  - SUDDEN DEATH [None]
